FAERS Safety Report 12913839 (Version 2)
Quarter: 2017Q2

REPORT INFORMATION
  Report Type: Spontaneous
  Country: US (occurrence: US)
  Receive Date: 20161105
  Receipt Date: 20170404
  Transmission Date: 20170830
  Serious: Yes (Other)
  Sender: FDA-Public Use
  Company Number: US-TEVA-709925ACC

PATIENT
  Age: 54 Year
  Sex: Female
  Weight: 86.26 kg

DRUGS (1)
  1. PARAGARD T 380A [Suspect]
     Active Substance: COPPER
     Indication: CONTRACEPTION
     Dates: start: 20080912, end: 20161025

REACTIONS (13)
  - Bacterial vaginosis [Unknown]
  - Device expulsion [Recovered/Resolved]
  - Cervix disorder [Unknown]
  - Vaginal discharge [Recovered/Resolved]
  - Dyspareunia [Unknown]
  - Abdominal discomfort [Unknown]
  - Device breakage [Not Recovered/Not Resolved]
  - Vulvovaginal discomfort [Unknown]
  - Device dislocation [Recovered/Resolved]
  - Trichomoniasis [Unknown]
  - Complication associated with device [Not Recovered/Not Resolved]
  - Uterine cervical pain [Unknown]
  - Vaginal haemorrhage [Unknown]

NARRATIVE: CASE EVENT DATE: 201608
